FAERS Safety Report 15309478 (Version 1)
Quarter: 2018Q4

REPORT INFORMATION
  Report Type: Spontaneous
  Country: DE (occurrence: DE)
  Receive Date: 20180823
  Receipt Date: 20180823
  Transmission Date: 20190204
  Serious: Yes (Hospitalization, Other)
  Sender: FDA-Public Use
  Company Number: DE-TEVA-2018-DE-944780

PATIENT
  Age: 78 Year
  Sex: Female

DRUGS (3)
  1. METEX (METHOTREXATE SODIUM) [Suspect]
     Active Substance: METHOTREXATE SODIUM
     Indication: CREST SYNDROME
     Route: 058
  2. ESTRADIOL. [Suspect]
     Active Substance: ESTRADIOL
     Dosage: 1 DOSAGE FORMS DAILY; 1 PUFF ONCE DAILY (UNKNOWN, 1 M 1 D)
     Route: 062
     Dates: start: 201805, end: 201806
  3. GYNOKADIN DOSIERGEL (ESTRADIOL HEMIHYDRATE) [Suspect]
     Active Substance: ESTRADIOL HEMIHYDRATE
     Indication: MENOPAUSAL DISORDER
     Dosage: 1 DOSAGE FORMS DAILY; 1 PUFF ONCE DAILY (UNKNOWN, 1 IN 1 D)
     Route: 062
     Dates: start: 201805, end: 201806

REACTIONS (2)
  - Suture rupture [Recovered/Resolved]
  - Impaired healing [Recovered/Resolved]

NARRATIVE: CASE EVENT DATE: 201804
